FAERS Safety Report 7491118-8 (Version None)
Quarter: 2011Q2

REPORT INFORMATION
  Report Type: 
  Country: None (occurrence: None)
  Receive Date: 20110519
  Receipt Date: 20110510
  Transmission Date: 20111010
  Serious: Yes (Other)
  Sender: FDA-Public Use
  Company Number: DE-ROCHE-776702

PATIENT
  Sex: Male

DRUGS (2)
  1. AVASTIN [Suspect]
     Indication: METASTATIC RENAL CELL CARCINOMA
     Route: 065
  2. INTERFERON [Concomitant]
     Indication: METASTATIC RENAL CELL CARCINOMA
     Route: 065

REACTIONS (4)
  - DECREASED APPETITE [None]
  - ACIDOSIS [None]
  - CACHEXIA [None]
  - METABOLIC DISORDER [None]
